FAERS Safety Report 6821852-1 (Version None)
Quarter: 2010Q3

REPORT INFORMATION
  Report Type: 
  Country: None (occurrence: None)
  Receive Date: 20100708
  Receipt Date: 20100629
  Transmission Date: 20110219
  Serious: Yes (Hospitalization)
  Sender: FDA-Public Use
  Company Number: US-BIOGENIDEC-2010BI022391

PATIENT
  Age: 54 Year
  Sex: Female

DRUGS (2)
  1. AVONEX [Suspect]
     Indication: MULTIPLE SCLEROSIS
     Route: 030
     Dates: start: 20060531
  2. ANTIBIOTICS (NOS) [Concomitant]

REACTIONS (4)
  - CROHN'S DISEASE [None]
  - HEPATOTOXICITY [None]
  - NEPHROPATHY TOXIC [None]
  - THROMBOSIS [None]
